FAERS Safety Report 12098653 (Version 1)
Quarter: 2016Q1

REPORT INFORMATION
  Report Type: Other
  Country: SG (occurrence: SG)
  Receive Date: 20160222
  Receipt Date: 20160222
  Transmission Date: 20160526
  Serious: Yes (Hospitalization, Other)
  Sender: FDA-Public Use
  Company Number: SG-ORCHID HEALTHCARE-1048182

PATIENT
  Age: 93 Year
  Sex: Male

DRUGS (4)
  1. MEMANTINE HYDROCHLORIDE [Suspect]
     Active Substance: MEMANTINE HYDROCHLORIDE
     Indication: DEMENTIA ALZHEIMER^S TYPE
     Route: 065
  2. CHLORPHENIRAMINE. [Concomitant]
     Active Substance: CHLORPHENIRAMINE
     Route: 065
  3. LEVOFLOXACIN. [Concomitant]
     Active Substance: LEVOFLOXACIN
     Route: 065
  4. DEXTROMETHORPHAN HBR [Concomitant]
     Active Substance: DEXTROMETHORPHAN HYDROBROMIDE
     Route: 065

REACTIONS (9)
  - Renal impairment [Unknown]
  - Myoclonus [Recovered/Resolved]
  - Drug interaction [Recovered/Resolved]
  - Upper respiratory tract infection [None]
  - Dementia with Lewy bodies [None]
  - Lacunar infarction [Unknown]
  - Confusional state [None]
  - Parkinsonism [None]
  - Escherichia urinary tract infection [Unknown]
